FAERS Safety Report 11575055 (Version 2)
Quarter: 2015Q4

REPORT INFORMATION
  Report Type: Spontaneous
  Country: US (occurrence: None)
  Receive Date: 20150928
  Receipt Date: 20151013
  Transmission Date: 20160304
  Serious: Yes (Other)
  Sender: FDA-Public Use
  Company Number: 1713747-2015-999336

PATIENT
  Sex: Male

DRUGS (3)
  1. LIBERTY CYCLER [Concomitant]
     Active Substance: DEVICE
  2. LIBERTY CYCLER CASSETTE [Concomitant]
     Active Substance: DEVICE
  3. DELFLEX [Suspect]
     Active Substance: CALCIUM CHLORIDE\DEXTROSE MONOHYDRATE\MAGNESIUM CHLORIDE\SODIUM CHLORIDE\SODIUM LACTATE
     Indication: CHRONIC KIDNEY DISEASE
     Route: 033

REACTIONS (1)
  - Peritonitis bacterial [None]

NARRATIVE: CASE EVENT DATE: 20150901
